FAERS Safety Report 4302561-X (Version None)
Quarter: 2004Q1

REPORT INFORMATION
  Report Type: 
  Country: None (occurrence: None)
  Receive Date: 20040217
  Receipt Date: 20031104
  Transmission Date: 20041129
  Serious: Yes (Other)
  Sender: FDA-Public Use
  Company Number: 2003184165US

PATIENT
  Sex: Female

DRUGS (2)
  1. CYTOTEC [Suspect]
     Indication: LABOUR INDUCTION
     Dosage: 25 MICROGRAMS
     Dates: start: 20011017, end: 20011017
  2. OXYTOCIN 10 USP UNITS IN DEXTROSE 5% [Suspect]
     Indication: LABOUR INDUCTION
     Dates: start: 20011017

REACTIONS (1)
  - UTERINE RUPTURE [None]
